FAERS Safety Report 9735116 (Version 1)
Quarter: 2013Q4

REPORT INFORMATION
  Report Type: Report from Study
  Country: US (occurrence: US)
  Receive Date: 20131206
  Receipt Date: 20131206
  Transmission Date: 20140711
  Serious: Yes (Other)
  Sender: FDA-Public Use
  Company Number: US-ROCHE-1312437

PATIENT
  Sex: 0

DRUGS (6)
  1. PEG-INTERFERON ALFA 2A [Suspect]
     Indication: HEPATITIS C
     Route: 065
  2. RIBAVIRIN [Suspect]
     Indication: HEPATITIS C
     Route: 065
  3. TELAPREVIR [Suspect]
     Indication: HEPATITIS C
     Route: 065
  4. AZATHIOPRINE [Suspect]
     Indication: INFLAMMATORY BOWEL DISEASE
     Route: 065
  5. MESALAMINE [Concomitant]
     Route: 065
  6. BUDESONIDE [Concomitant]

REACTIONS (5)
  - Pancytopenia [Unknown]
  - Diarrhoea [Recovered/Resolved]
  - Abdominal pain [Unknown]
  - Leukopenia [Unknown]
  - Anaemia [Unknown]
